FAERS Safety Report 8810457 (Version 1)
Quarter: 2012Q4

REPORT INFORMATION
  Report Type: 
  Country: US (occurrence: US)
  Receive Date: 20120927
  Receipt Date: 20120927
  Transmission Date: 20130627
  Serious: Yes (Death)
  Sender: FDA-Public Use
  Company Number: US-BRISTOL-MYERS SQUIBB COMPANY-16968323

PATIENT
  Age: 19 Year
  Sex: Female

DRUGS (4)
  1. CISPLATIN [Suspect]
     Indication: MEDULLOBLASTOMA
  2. DASATINIB [Suspect]
     Indication: MEDULLOBLASTOMA
  3. CYCLOPHOSPHAMIDE [Suspect]
     Indication: MEDULLOBLASTOMA
  4. VINCRISTINE [Suspect]
     Indication: MEDULLOBLASTOMA

REACTIONS (1)
  - Chronic myeloid leukaemia [Fatal]
